FAERS Safety Report 8118859-3 (Version None)
Quarter: 2012Q1

REPORT INFORMATION
  Report Type: 
  Country: None (occurrence: None)
  Receive Date: 20120207
  Receipt Date: 20120130
  Transmission Date: 20120608
  Serious: Yes (Other)
  Sender: FDA-Public Use
  Company Number: CO-ELI_LILLY_AND_COMPANY-CO201202000262

PATIENT
  Age: 48 Year
  Sex: Male

DRUGS (5)
  1. CISPLATIN [Concomitant]
     Dosage: UNK, UNKNOWN
     Dates: start: 20120101
  2. ALIMTA [Suspect]
     Indication: LUNG ADENOCARCINOMA
     Dosage: UNK, UNKNOWN
     Dates: start: 20120101
  3. FOLIC ACID [Concomitant]
     Dosage: UNK, UNKNOWN
  4. VITAMIN B-12 [Concomitant]
     Dosage: UNK, UNKNOWN
  5. DEXAMETHASONE TAB [Concomitant]
     Dosage: UNK, UNKNOWN

REACTIONS (2)
  - OXYGEN SATURATION DECREASED [None]
  - RASH [None]
